FAERS Safety Report 13700711 (Version 1)
Quarter: 2017Q2

REPORT INFORMATION
  Report Type: Spontaneous
  Country: US (occurrence: US)
  Receive Date: 20170629
  Receipt Date: 20170629
  Transmission Date: 20170830
  Serious: Yes (Other)
  Sender: FDA-Public Use
  Company Number: US-STANDARD HOMEOPATHIC COMPANY-2022655

PATIENT
  Age: 12 Month
  Sex: Female

DRUGS (7)
  1. HYLANDS BABY CALMING TABLETS [Suspect]
     Active Substance: HOMEOPATHICS
     Indication: AGITATION
     Route: 048
     Dates: start: 20170611, end: 20170614
  2. HYLANDS BABY CALMING TABLETS [Suspect]
     Active Substance: HOMEOPATHICS
     Indication: RESTLESSNESS
     Route: 048
     Dates: start: 20170611, end: 20170614
  3. HYLANDS BABY CALMING TABLETS [Suspect]
     Active Substance: HOMEOPATHICS
     Indication: CRYING
     Route: 048
     Dates: start: 20170611, end: 20170614
  4. HYLANDS BABY CALMING TABLETS [Suspect]
     Active Substance: HOMEOPATHICS
     Indication: INSOMNIA
     Route: 048
     Dates: start: 20170611, end: 20170614
  5. HYLANDS BABY CALMING TABLETS [Suspect]
     Active Substance: HOMEOPATHICS
     Indication: IRRITABILITY
     Route: 048
     Dates: start: 20170611, end: 20170614
  6. HYLANDS BABY CALMING TABLETS [Suspect]
     Active Substance: HOMEOPATHICS
     Indication: IRREGULAR SLEEP PHASE
     Route: 048
     Dates: start: 20170611, end: 20170614
  7. HYLANDS BABY CALMING TABLETS [Suspect]
     Active Substance: HOMEOPATHICS
     Indication: SOMNAMBULISM
     Route: 048
     Dates: start: 20170611, end: 20170614

REACTIONS (1)
  - Pyrexia [None]

NARRATIVE: CASE EVENT DATE: 20170615
